FAERS Safety Report 23059314 (Version 1)
Quarter: 2023Q4

REPORT INFORMATION
  Report Type: Report from Study
  Country: US (occurrence: US)
  Receive Date: 20231012
  Receipt Date: 20231012
  Transmission Date: 20240110
  Serious: No
  Sender: FDA-Public Use
  Company Number: US-002147023-NVSC2023US217519

PATIENT
  Sex: Female

DRUGS (2)
  1. COSENTYX [Suspect]
     Active Substance: SECUKINUMAB
     Indication: Dermatitis atopic
     Dosage: UNK
     Route: 065
  2. MOMETASONE [Suspect]
     Active Substance: MOMETASONE
     Indication: Dermatitis atopic
     Dosage: UNK
     Route: 065

REACTIONS (3)
  - Dermatitis atopic [Unknown]
  - Off label use [Unknown]
  - Drug ineffective [Unknown]
